FAERS Safety Report 7600423-3 (Version None)
Quarter: 2011Q3

REPORT INFORMATION
  Report Type: 
  Country: None (occurrence: None)
  Receive Date: 20110711
  Receipt Date: 20110706
  Transmission Date: 20111222
  Serious: Yes (Death, Other)
  Sender: FDA-Public Use
  Company Number: US-CUBIST-2011S1000440

PATIENT
  Age: 87 Year
  Sex: Male

DRUGS (1)
  1. CUBICIN [Suspect]
     Indication: BACTERAEMIA
     Dosage: DOSE UNIT:U UNKNOWN
     Route: 065

REACTIONS (2)
  - ENDOCARDITIS [None]
  - DEATH [None]
